FAERS Safety Report 14674568 (Version 2)
Quarter: 2020Q2

REPORT INFORMATION
  Report Type: Spontaneous
  Country: FR (occurrence: FR)
  Receive Date: 20180323
  Receipt Date: 20200515
  Transmission Date: 20200713
  Serious: Yes (Hospitalization)
  Sender: FDA-Public Use
  Company Number: FR-TEVA-2018-FR-870231

PATIENT
  Age: 69 Year
  Sex: Female
  Weight: 100 kg

DRUGS (23)
  1. AVASTIN [Concomitant]
     Active Substance: BEVACIZUMAB
     Route: 041
  2. LEVOTHYROX 50 MICROGRAMMES, COMPRIM? S?CABLE [Concomitant]
     Active Substance: LEVOTHYROXINE SODIUM
     Route: 048
  3. LASILIX 40 MG, COMPRIM? S?CABLE [Concomitant]
     Active Substance: FUROSEMIDE
     Route: 048
  4. CACIT [Concomitant]
     Route: 048
  5. GABAPENTINE [Concomitant]
     Active Substance: GABAPENTIN
     Route: 048
  6. ELIQUIS [Concomitant]
     Active Substance: APIXABAN
     Route: 048
  7. LANSOPRAZOLE. [Concomitant]
     Active Substance: LANSOPRAZOLE
     Route: 048
  8. BILASKA 20 MG, COMPRIM? [Concomitant]
     Active Substance: BILASTINE
     Route: 048
  9. OXALIPLATINE [Suspect]
     Active Substance: OXALIPLATIN
     Indication: COLON CANCER
     Route: 041
     Dates: start: 20170907
  10. ONDANSETRON [Concomitant]
     Active Substance: ONDANSETRON
     Route: 041
  11. CEFTRIAXONE SODIQUE [Concomitant]
     Active Substance: CEFTRIAXONE SODIUM
     Route: 030
  12. PRAVASTATINE SODIQUE [Concomitant]
     Active Substance: PRAVASTATIN SODIUM
     Route: 048
  13. JANUVIA [Concomitant]
     Active Substance: SITAGLIPTIN PHOSPHATE
     Route: 048
  14. FLUOROURACILE [Concomitant]
     Active Substance: FLUOROURACIL
     Route: 041
  15. FOSAMAX 70 MG, COMPRIM? [Concomitant]
     Route: 048
  16. PARACETAMOL [Concomitant]
     Active Substance: ACETAMINOPHEN
     Route: 041
  17. FOLINATE CALCIQUE [Concomitant]
     Active Substance: LEUCOVORIN CALCIUM
     Route: 041
  18. SALBUTAMOL [Concomitant]
     Active Substance: ALBUTEROL
     Route: 055
  19. ALLOPURINOL. [Concomitant]
     Active Substance: ALLOPURINOL
     Route: 048
  20. DIGOXINE NATIVELLE 0,25 MG, COMPRIM? [Concomitant]
     Active Substance: DIGOXIN
     Route: 048
  21. BISOCE 2,5 MG, COMPRIM? PELLICUL? S?CABLE [Concomitant]
     Active Substance: BISOPROLOL FUMARATE
     Route: 048
  22. IPRATROPIUM (BROMURE D^) [Concomitant]
     Active Substance: IPRATROPIUM
     Route: 055
  23. SINGULAIR 5 MG, COMPRIM? ? CROQUER [Concomitant]
     Route: 048

REACTIONS (4)
  - Oxygen saturation decreased [Recovering/Resolving]
  - Dyspnoea [Recovering/Resolving]
  - Erythema [Recovering/Resolving]
  - Burning sensation [Recovering/Resolving]

NARRATIVE: CASE EVENT DATE: 20170907
